FAERS Safety Report 12602914 (Version 1)
Quarter: 2016Q3

REPORT INFORMATION
  Report Type: Spontaneous
  Country: FR (occurrence: FR)
  Receive Date: 20160728
  Receipt Date: 20160728
  Transmission Date: 20161109
  Serious: Yes (Hospitalization, Other)
  Sender: FDA-Public Use
  Company Number: FR-009507513-1607FRA010548

PATIENT
  Age: 77 Year
  Sex: Male
  Weight: 95 kg

DRUGS (6)
  1. BETOPTIC [Concomitant]
     Active Substance: BETAXOLOL HYDROCHLORIDE
     Indication: GLAUCOMA
     Dosage: 1 DROP DAILY
     Dates: start: 1993
  2. GLUCOR [Concomitant]
     Active Substance: ACARBOSE
     Indication: DIABETES MELLITUS
     Dosage: 100 MG, TID
     Dates: start: 1985
  3. HUMALOG [Concomitant]
     Active Substance: INSULIN LISPRO
     Indication: DIABETES MELLITUS
     Dosage: 14 UNITS- 12 UNITS- 20 UNITS, THREE DOSES DAILY
     Dates: start: 1985
  4. VIRAFERONPEG [Suspect]
     Active Substance: PEGINTERFERON ALFA-2B
     Indication: HEPATITIS C
     Dosage: 150 MICROGRAM, UNK
  5. REBETOL [Suspect]
     Active Substance: RIBAVIRIN
     Indication: HEPATITIS C
     Dosage: UNK
     Route: 048
  6. AVLOCARDYL [Concomitant]
     Active Substance: PROPRANOLOL HYDROCHLORIDE
     Indication: HYPERTENSION
     Dosage: 40 MG, QD
     Dates: start: 1985

REACTIONS (8)
  - Iron deficiency anaemia [Unknown]
  - Obesity [Unknown]
  - Ascites [Unknown]
  - Cholecystitis [Recovered/Resolved]
  - Acute respiratory failure [Unknown]
  - Acute kidney injury [Unknown]
  - Malnutrition [Unknown]
  - Oedema peripheral [Unknown]

NARRATIVE: CASE EVENT DATE: 201601
